FAERS Safety Report 19928283 (Version 1)
Quarter: 2021Q4

REPORT INFORMATION
  Report Type: Spontaneous
  Country: US (occurrence: US)
  Receive Date: 20211006
  Receipt Date: 20211006
  Transmission Date: 20220303
  Serious: Yes (Other)
  Sender: FDA-Public Use
  Company Number: None

PATIENT
  Age: 58 Year
  Sex: Female
  Weight: 126 kg

DRUGS (5)
  1. OZEMPIC [Suspect]
     Active Substance: SEMAGLUTIDE
     Indication: Diabetes mellitus management
     Dosage: ?          QUANTITY:1 INJECTION(S);
     Route: 058
  2. ESTRADIOL [Concomitant]
     Active Substance: ESTRADIOL
  3. PROGESTERIN PILL [Concomitant]
  4. ZOLPIDIEM [Concomitant]
  5. BASIC WOMWNS VITAMIN [Concomitant]

REACTIONS (18)
  - Diarrhoea [None]
  - Fatigue [None]
  - Dyspnoea [None]
  - Urinary retention [None]
  - Bladder pain [None]
  - Urethral pain [None]
  - Back pain [None]
  - Hepatic pain [None]
  - Angina pectoris [None]
  - Arthralgia [None]
  - Pain in extremity [None]
  - Pain [None]
  - Paraesthesia [None]
  - Hypoaesthesia [None]
  - Muscle twitching [None]
  - Muscle spasms [None]
  - Bronchial disorder [None]
  - Nasopharyngitis [None]

NARRATIVE: CASE EVENT DATE: 20210815
